FAERS Safety Report 10283160 (Version 4)
Quarter: 2016Q1

REPORT INFORMATION
  Report Type: Spontaneous
  Country: FR (occurrence: FR)
  Receive Date: 20140708
  Receipt Date: 20160202
  Transmission Date: 20160525
  Serious: Yes (Death, Hospitalization, Disabling, Other)
  Sender: FDA-Public Use
  Company Number: FR-AMGEN INC.-FRASP2014049799

PATIENT
  Age: 79 Year
  Sex: Female

DRUGS (6)
  1. PRETERAX                           /01421201/ [Concomitant]
     Active Substance: INDAPAMIDE\PERINDOPRIL
     Dosage: 2.5 MG/0.625 MG,
  2. CALCIDOSE                          /00944201/ [Concomitant]
     Active Substance: CALCIUM CARBONATE\CHOLECALCIFEROL
  3. CALDINE                            /01051302/ [Concomitant]
     Active Substance: MANIDIPINE HYDROCHLORIDE
     Dosage: 2 MG, UNK
  4. DIPROSTENE [Suspect]
     Active Substance: BETAMETHASONE DIPROPIONATE\BETAMETHASONE SODIUM PHOSPHATE
     Indication: BACK PAIN
     Dosage: UNK
     Route: 014
     Dates: start: 20140310, end: 20140310
  5. PROLIA [Suspect]
     Active Substance: DENOSUMAB
     Indication: OSTEOPOROTIC FRACTURE
     Dosage: 60 MG, UNK
     Route: 058
     Dates: start: 20140310, end: 20140310
  6. LIPANTHYL [Concomitant]
     Active Substance: FENOFIBRATE
     Dosage: 200 MUG, UNK

REACTIONS (10)
  - Death [Fatal]
  - Dyskinesia [Not Recovered/Not Resolved]
  - Dysarthria [Not Recovered/Not Resolved]
  - Fall [Not Recovered/Not Resolved]
  - Upper motor neurone lesion [Unknown]
  - Facial bones fracture [Unknown]
  - Extrapyramidal disorder [Not Recovered/Not Resolved]
  - Balance disorder [Not Recovered/Not Resolved]
  - Muscular weakness [Not Recovered/Not Resolved]
  - Wrist fracture [Not Recovered/Not Resolved]

NARRATIVE: CASE EVENT DATE: 20140325
